FAERS Safety Report 10972100 (Version 1)
Quarter: 2015Q1

REPORT INFORMATION
  Report Type: Spontaneous
  Country: JP (occurrence: JP)
  Receive Date: 20150331
  Receipt Date: 20150331
  Transmission Date: 20150721
  Serious: Yes (Other)
  Sender: FDA-Public Use
  Company Number: PHJP2015JP004179

PATIENT
  Age: 84 Year
  Sex: Male

DRUGS (1)
  1. ULTIBRO INHALATION CAPSULES [Suspect]
     Active Substance: GLYCOPYRRONIUM\INDACATEROL
     Indication: CHRONIC OBSTRUCTIVE PULMONARY DISEASE
     Dosage: 1 DF, QD
     Route: 055
     Dates: end: 20150212

REACTIONS (3)
  - Oxygen saturation decreased [Unknown]
  - Chronic obstructive pulmonary disease [Recovered/Resolved]
  - Sputum retention [Unknown]

NARRATIVE: CASE EVENT DATE: 20150212
